FAERS Safety Report 19829564 (Version 5)
Quarter: 2023Q1

REPORT INFORMATION
  Report Type: Report from Study
  Country: CN (occurrence: None)
  Receive Date: 20210914
  Receipt Date: 20230315
  Transmission Date: 20230418
  Serious: Yes (Death, Hospitalization)
  Sender: FDA-Public Use
  Company Number: CN-ROCHE-2742046

PATIENT
  Age: 68 Year
  Sex: Male
  Weight: 63 kg

DRUGS (14)
  1. ATEZOLIZUMAB [Suspect]
     Active Substance: ATEZOLIZUMAB
     Indication: Non-small cell lung cancer stage IV
     Dosage: ON 23/OCT/2020, HE RECEIVED MOST RECENT DOSE OF ATEZOLIZUMAB (1200 MG) PRIOR TO ONSET OF SERIOUS ADV
     Route: 041
     Dates: start: 20180607
  2. CISPLATIN [Suspect]
     Active Substance: CISPLATIN
     Indication: Non-small cell lung cancer stage IV
     Dosage: ON 10/AUG/2018, HE RECEIVED MOST RECENT DOSE OF CISPLATIN (120 MG) PRIOR TO ONSET OF SERIOUS ADVERSE
     Route: 042
     Dates: start: 20180607
  3. PEMETREXED [Suspect]
     Active Substance: PEMETREXED
     Indication: Non-small cell lung cancer stage IV
     Dosage: ON 23/OCT/2020, HE RECEIVED MOST RECENT DOSE OF PEMETREXED PRIOR (800 MG) PRIOR TO ONSET OF SERIOUS
     Route: 042
     Dates: start: 20180607
  4. FOLIC ACID [Concomitant]
     Active Substance: FOLIC ACID
     Dates: start: 20180606
  5. RABEPRAZOLE SODIUM [Concomitant]
     Active Substance: RABEPRAZOLE SODIUM
     Dates: start: 20201022, end: 20201022
  6. METOCLOPRAMIDE DIHYDROCHLORIDE [Concomitant]
     Indication: Vomiting
     Dates: start: 20201023, end: 20201023
  7. AZASETRON HYDROCHLORIDE [Concomitant]
     Active Substance: AZASETRON HYDROCHLORIDE
     Indication: Vomiting
     Dates: start: 20201023, end: 20201023
  8. LEUCOGEN [Concomitant]
     Active Substance: LEUCOGEN
     Indication: White blood cell count increased
     Dates: start: 20201023, end: 20201026
  9. LEUCOGEN [Concomitant]
     Active Substance: LEUCOGEN
     Dates: start: 20201113, end: 20201116
  10. OMEPRAZOLE SODIUM [Concomitant]
     Active Substance: OMEPRAZOLE SODIUM
     Dates: start: 20201231, end: 20210107
  11. L-GLUTAMINE AND SODIUM GUALENATE [Concomitant]
     Dates: start: 20201231, end: 20210107
  12. BICYCLOL [Concomitant]
     Active Substance: BICYCLOL
     Indication: Hepatic function abnormal
     Dates: start: 20210104, end: 20210107
  13. LIDOCAINE HYDROCHLORIDE [Concomitant]
     Active Substance: LIDOCAINE HYDROCHLORIDE
     Dates: start: 20210106, end: 20210106
  14. LIDOCAINE HYDROCHLORIDE [Concomitant]
     Active Substance: LIDOCAINE HYDROCHLORIDE
     Dates: start: 20201231, end: 20201231

REACTIONS (2)
  - Platelet count decreased [Fatal]
  - Anaemia [Fatal]

NARRATIVE: CASE EVENT DATE: 20201112
